FAERS Safety Report 7263787-9 (Version None)
Quarter: 2011Q1

REPORT INFORMATION
  Report Type: 
  Country: None (occurrence: None)
  Receive Date: 20110130
  Receipt Date: 20101109
  Transmission Date: 20110831
  Serious: No
  Sender: FDA-Public Use
  Company Number: US-ABBOTT-10P-163-0684268-00

PATIENT
  Sex: Male
  Weight: 79.45 kg

DRUGS (3)
  1. METHOTREXATE [Concomitant]
     Indication: RHEUMATOID ARTHRITIS
     Dosage: 8 WEEK
     Route: 048
     Dates: start: 20080101, end: 20100901
  2. PERCOCET [Concomitant]
     Indication: ARTHRALGIA
     Route: 048
  3. HUMIRA [Suspect]
     Indication: RHEUMATOID ARTHRITIS
     Route: 058
     Dates: start: 20100201, end: 20100901

REACTIONS (2)
  - HYPERSENSITIVITY [None]
  - RASH [None]
